FAERS Safety Report 6901064-3 (Version None)
Quarter: 2010Q3

REPORT INFORMATION
  Report Type: 
  Country: None (occurrence: None)
  Receive Date: 20100803
  Receipt Date: 20100726
  Transmission Date: 20110219
  Serious: Yes (Other)
  Sender: FDA-Public Use
  Company Number: US-AMGEN-QUU415061

PATIENT
  Sex: Female
  Weight: 70 kg

DRUGS (2)
  1. ENBREL [Suspect]
     Indication: RHEUMATOID ARTHRITIS
     Route: 058
     Dates: start: 20100520, end: 20100601
  2. METHOTREXATE [Concomitant]

REACTIONS (12)
  - ABDOMINAL PAIN [None]
  - AMNESIA [None]
  - CONTUSION [None]
  - DECREASED APPETITE [None]
  - FATIGUE [None]
  - HEADACHE [None]
  - MYOCLONUS [None]
  - NERVOUSNESS [None]
  - PALLOR [None]
  - SWELLING [None]
  - TACHYCARDIA [None]
  - TARDIVE DYSKINESIA [None]
